FAERS Safety Report 5473513-1 (Version None)
Quarter: 2007Q3

REPORT INFORMATION
  Report Type: 
  Country: None (occurrence: None)
  Receive Date: 20070830
  Receipt Date: 20070202
  Transmission Date: 20080115
  Serious: Yes (Hospitalization)
  Sender: FDA-Public Use
  Company Number: KADN20070024

PATIENT
  Age: 58 Year
  Sex: Male
  Weight: 99.3377 kg

DRUGS (9)
  1. KADIAN [Suspect]
     Indication: BACK PAIN
     Dosage: 1 CAP, 3 DOSES, PER ORAL
     Route: 048
     Dates: start: 20061215, end: 20061216
  2. CYMBALTA [Suspect]
     Indication: DEPRESSION
     Dosage: 1 CAP DAILY, PER ORAL
     Route: 048
  3. LABETALOL HCL [Concomitant]
  4. DOXAZOSIN MESYLATE [Concomitant]
  5. LASIX [Concomitant]
  6. MINOXIDIL [Concomitant]
  7. PROVERA [Concomitant]
  8. LANTUS [Concomitant]
  9. FERRO-SEQUELS [Concomitant]

REACTIONS (2)
  - MENTAL STATUS CHANGES [None]
  - MYOCLONUS [None]
